FAERS Safety Report 15245333 (Version 2)
Quarter: 2018Q4

REPORT INFORMATION
  Report Type: Spontaneous
  Country: US (occurrence: US)
  Receive Date: 20180806
  Receipt Date: 20181002
  Transmission Date: 20190204
  Serious: Yes (Hospitalization)
  Sender: FDA-Public Use
  Company Number: US-ELI_LILLY_AND_COMPANY-US201808000914

PATIENT
  Sex: Female

DRUGS (2)
  1. ABEMACICLIB 150MG [Suspect]
     Active Substance: ABEMACICLIB
     Indication: BREAST CANCER
     Dosage: 150 MG, BID
     Route: 065
     Dates: start: 20180630
  2. ABEMACICLIB 150MG [Suspect]
     Active Substance: ABEMACICLIB
     Dosage: 100 MG, BID
     Route: 065

REACTIONS (4)
  - Asthenia [Unknown]
  - Dehydration [Unknown]
  - Hypophagia [Unknown]
  - Renal failure [Unknown]
